FAERS Safety Report 7548771-X (Version None)
Quarter: 2011Q2

REPORT INFORMATION
  Report Type: 
  Country: None (occurrence: None)
  Receive Date: 20110615
  Receipt Date: 20110614
  Transmission Date: 20111010
  Serious: Yes (Other)
  Sender: FDA-Public Use
  Company Number: IT-PFIZER INC-2011129803

PATIENT
  Age: 74 Year
  Sex: Female

DRUGS (4)
  1. LORAZEPAM [Suspect]
     Dosage: 3 DOSAGE UNITS, DAILY
     Route: 048
     Dates: start: 20100419, end: 20110418
  2. CITALOPRAM [Suspect]
     Dosage: 2 DOSAGE UNITS, DAILY
     Route: 048
     Dates: start: 20100419, end: 20110418
  3. ASPIRIN [Concomitant]
     Dosage: 100 MG, UNK
     Route: 048
  4. XANAX [Suspect]
     Dosage: 3 DOSAGE UNITS, DAILY
     Route: 048
     Dates: start: 20100419, end: 20110418

REACTIONS (2)
  - PRESYNCOPE [None]
  - BRADYCARDIA [None]
